FAERS Safety Report 22258381 (Version 2)
Quarter: 2023Q2

REPORT INFORMATION
  Report Type: Spontaneous
  Country: US (occurrence: US)
  Receive Date: 20230427
  Receipt Date: 20230607
  Transmission Date: 20230721
  Serious: Yes (Hospitalization, Other)
  Sender: FDA-Public Use
  Company Number: US-JNJFOC-20230449756

PATIENT
  Age: 66 Year
  Sex: Male
  Weight: 102.15 kg

DRUGS (2)
  1. XARELTO [Suspect]
     Active Substance: RIVAROXABAN
     Indication: Knee arthroplasty
     Route: 048
     Dates: start: 202304, end: 20230418
  2. XARELTO [Suspect]
     Active Substance: RIVAROXABAN
     Indication: Thrombosis prophylaxis

REACTIONS (2)
  - Deep vein thrombosis [Unknown]
  - Treatment failure [Unknown]

NARRATIVE: CASE EVENT DATE: 20230401
